FAERS Safety Report 9869832 (Version 2)
Quarter: 2015Q1

REPORT INFORMATION
  Report Type: Spontaneous
  Country: US (occurrence: US)
  Receive Date: 20140205
  Receipt Date: 20150214
  Transmission Date: 20150721
  Serious: No
  Sender: FDA-Public Use
  Company Number: US-GLAXOSMITHKLINE-A1052917A

PATIENT

DRUGS (3)
  1. FONDAPARINUX SOLUTION FOR INJECTION [Suspect]
     Active Substance: FONDAPARINUX
     Dates: start: 2012
  2. FONDAPARINUX SOLUTION FOR INJECTION [Suspect]
     Active Substance: FONDAPARINUX
     Indication: PRODUCT USED FOR UNKNOWN INDICATION
     Dosage: 10 MG/0.8 ML. UNKNOWN DOSING.
     Route: 065
     Dates: start: 2012
  3. FONDAPARINUX SOLUTION FOR INJECTION [Suspect]
     Active Substance: FONDAPARINUX
     Dates: start: 2012

REACTIONS (2)
  - Product quality issue [Unknown]
  - Contusion [Unknown]

NARRATIVE: CASE EVENT DATE: 201308
